FAERS Safety Report 9048506 (Version 1)
Quarter: 2013Q1

REPORT INFORMATION
  Report Type: Spontaneous
  Country: US (occurrence: None)
  Receive Date: 20130130
  Receipt Date: 20130130
  Transmission Date: 20140127
  Serious: Yes (Hospitalization)
  Sender: FDA-Public Use
  Company Number: None

PATIENT
  Age: 61 Year
  Sex: Male
  Weight: 109 kg

DRUGS (16)
  1. MORPHINE [Suspect]
     Indication: PAIN
     Dosage: CHRONIC
     Route: 048
  2. AMBIEN CR [Suspect]
     Indication: INSOMNIA
     Route: 048
  3. LYRICA [Suspect]
  4. HYDROCODONE/APAP [Suspect]
  5. BUPROPION [Suspect]
  6. UROXATRAL [Concomitant]
  7. CILOSTAZOL [Concomitant]
  8. VIT D2 [Concomitant]
  9. LISINOPRIL [Concomitant]
  10. REGLAN [Concomitant]
  11. METOPROLOL XR [Concomitant]
  12. MVI [Concomitant]
  13. OMEPRAZOLE [Concomitant]
  14. ROPINIROLE [Concomitant]
  15. CRESTOR [Concomitant]
  16. TERBINAFINE [Concomitant]

REACTIONS (7)
  - Overdose [None]
  - Unresponsive to stimuli [None]
  - Somnolence [None]
  - Mental status changes [None]
  - Troponin increased [None]
  - Syncope [None]
  - Rhabdomyolysis [None]
